FAERS Safety Report 9398372 (Version 1)
Quarter: 2013Q3

REPORT INFORMATION
  Report Type: Spontaneous
  Country: IT (occurrence: None)
  Receive Date: 20130709
  Receipt Date: 20130709
  Transmission Date: 20140515
  Serious: Yes (Other)
  Sender: FDA-Public Use
  Company Number: AUR-APL-2013-05644

PATIENT
  Age: 45 Year
  Sex: Female

DRUGS (2)
  1. AMOXICILLIN (AMOXICILLIN) [Suspect]
     Indication: TOOTHACHE
     Route: 048
     Dates: start: 20130529, end: 20130529
  2. NIMESULIDE (NIMESULIDE) [Concomitant]

REACTIONS (6)
  - Asthenia [None]
  - Pruritus [None]
  - Erythema [None]
  - Abdominal pain [None]
  - Diarrhoea [None]
  - Vomiting [None]
